FAERS Safety Report 10140570 (Version 2)
Quarter: 2015Q1

REPORT INFORMATION
  Report Type: Other
  Country: US (occurrence: US)
  Receive Date: 20140429
  Receipt Date: 20150227
  Transmission Date: 20150720
  Serious: Yes (Death, Hospitalization, Other)
  Sender: FDA-Public Use
  Company Number: US-GSKPPD-2014GSK040754

PATIENT
  Age: 75 Year
  Sex: Female

DRUGS (2)
  1. PERSANTINE [Concomitant]
     Active Substance: DIPYRIDAMOLE
     Route: 048
     Dates: end: 200201
  2. AVANDIA [Suspect]
     Active Substance: ROSIGLITAZONE MALEATE
     Indication: DIABETES MELLITUS
     Dosage: 1 MG BID?DATES OF AVANDIA USE COULD NOT BE CONFIRMED IN RECORDS REVIEWED.
     Route: 048

REACTIONS (2)
  - Myocardial infarction [Recovered/Resolved]
  - Cardiac arrest [Fatal]

NARRATIVE: CASE EVENT DATE: 20020129
